FAERS Safety Report 24019223 (Version 2)
Quarter: 2024Q3

REPORT INFORMATION
  Report Type: Spontaneous
  Country: MY (occurrence: MY)
  Receive Date: 20240627
  Receipt Date: 20240711
  Transmission Date: 20241016
  Serious: Yes (Death, Other)
  Sender: PFIZER
  Company Number: MY-PFIZER INC-202400200280

PATIENT
  Age: 1 Year
  Sex: Male

DRUGS (2)
  1. ZITHROMAX [Suspect]
     Active Substance: AZITHROMYCIN DIHYDRATE
     Indication: Antibiotic therapy
     Dosage: 95 MG, 1X/DAY
     Route: 042
  2. ZITHROMAX [Suspect]
     Active Substance: AZITHROMYCIN DIHYDRATE
     Indication: Infection

REACTIONS (4)
  - Cardiopulmonary failure [Fatal]
  - Abdominal distension [Fatal]
  - Nausea [Fatal]
  - Off label use [Unknown]
